FAERS Safety Report 5257314-5 (Version None)
Quarter: 2007Q1

REPORT INFORMATION
  Report Type: 
  Country: None (occurrence: None)
  Receive Date: 20061220
  Receipt Date: 20061012
  Transmission Date: 20070707
  Serious: No
  Sender: FDA-Public Use
  Company Number: 2006RL000363

PATIENT
  Age: 76 Year
  Sex: Female

DRUGS (1)
  1. OMACOR [Suspect]
     Indication: BLOOD CHOLESTEROL INCREASED
     Dosage: 1 GM; QID; PO
     Route: 048
     Dates: start: 20060801, end: 20060101

REACTIONS (1)
  - ABDOMINAL DISTENSION [None]
